FAERS Safety Report 16665219 (Version 1)
Quarter: 2019Q3

REPORT INFORMATION
  Report Type: Spontaneous
  Country: US (occurrence: US)
  Receive Date: 20190803
  Receipt Date: 20190803
  Transmission Date: 20191004
  Serious: Yes (Other)
  Sender: FDA-Public Use
  Company Number: US-ACCORD-116695

PATIENT
  Age: 62 Year
  Sex: Female

DRUGS (2)
  1. DOCETAXEL ACCORD [Suspect]
     Active Substance: DOCETAXEL
     Indication: BREAST CANCER
     Dosage: DOSE: 142 MG (75 MG/M^2) (OF 10 MG/ML) SHORT OVER 1 HOUR FOR 1 DAY IN NS 250 ML
     Route: 042
     Dates: start: 20120906, end: 20121107
  2. CYTOXAN [Suspect]
     Active Substance: CYCLOPHOSPHAMIDE
     Indication: BREAST CANCER
     Dosage: DOSE: 1,134 MG (AT 600 MG/M2) (OF 20 MG/ML) SHORT OVER 1 HOURS FOR 1 DAY IN NS 250 ML
     Route: 042
     Dates: start: 20120906, end: 20121107

REACTIONS (1)
  - Alopecia [Not Recovered/Not Resolved]

NARRATIVE: CASE EVENT DATE: 20130416
